FAERS Safety Report 8790754 (Version 1)
Quarter: 2012Q4

REPORT INFORMATION
  Report Type: Spontaneous
  Country: US (occurrence: None)
  Receive Date: 20120913
  Receipt Date: 20120913
  Transmission Date: 20130627
  Serious: Yes (Life-Threatening)
  Sender: FDA-Public Use
  Company Number: None

PATIENT
  Age: 24 None
  Sex: Female
  Weight: 61.96 kg

DRUGS (15)
  1. CECLOR [Suspect]
  2. ERYTHROMYCIN [Suspect]
     Dosage: Days
  3. CEFTRIAXONE [Concomitant]
  4. DAPTOMYCIN [Concomitant]
  5. CECLOR [Concomitant]
  6. ZITHROMAX [Concomitant]
  7. CIPROFLOXACIN [Concomitant]
  8. CLINDAMYCIN [Concomitant]
  9. FLAGYL [Concomitant]
  10. BENADRYL [Concomitant]
  11. DILAUDID [Concomitant]
  12. VISTARIL [Concomitant]
  13. ATIVAN [Concomitant]
  14. ZOFRAN [Concomitant]
  15. TYLENOL [Concomitant]

REACTIONS (9)
  - Acute hepatic failure [None]
  - Drug eruption [None]
  - Drug tolerance decreased [None]
  - Leukopenia [None]
  - Paraesthesia [None]
  - Rash pruritic [None]
  - Rash erythematous [None]
  - Sensory disturbance [None]
  - Pyrexia [None]
